FAERS Safety Report 15714941 (Version 1)
Quarter: 2018Q4

REPORT INFORMATION
  Report Type: Spontaneous
  Country: US (occurrence: US)
  Receive Date: 20181212
  Receipt Date: 20181212
  Transmission Date: 20190205
  Serious: No
  Sender: FDA-Public Use
  Company Number: US-BAYER-2018-222091

PATIENT
  Age: 68 Year
  Sex: Female
  Weight: 64.41 kg

DRUGS (2)
  1. CIPRO [Suspect]
     Active Substance: CIPROFLOXACIN HYDROCHLORIDE
     Dosage: UNK
     Dates: end: 20181028
  2. LYRICA [Suspect]
     Active Substance: PREGABALIN
     Indication: NEUROPATHY PERIPHERAL
     Dosage: 75 MG, TID
     Route: 048

REACTIONS (9)
  - Limb injury [None]
  - Dyspnoea [Recovered/Resolved]
  - Nasopharyngitis [None]
  - Rash [Recovered/Resolved]
  - Burning sensation [None]
  - Tremor [Recovered/Resolved]
  - Chills [Recovered/Resolved]
  - Fear of death [Recovered/Resolved]
  - Disorientation [Recovered/Resolved]
